FAERS Safety Report 15766723 (Version 2)
Quarter: 2019Q1

REPORT INFORMATION
  Report Type: Report from Study
  Country: US (occurrence: US)
  Receive Date: 20181227
  Receipt Date: 20190108
  Transmission Date: 20190417
  Serious: Yes (Hospitalization)
  Sender: FDA-Public Use
  Company Number: US-SA-2018SA391067

PATIENT
  Age: 68 Year
  Sex: Female

DRUGS (3)
  1. ENOXAPARIN SODIUM. [Suspect]
     Active Substance: ENOXAPARIN SODIUM
     Dosage: UNK, QD
     Dates: start: 201811
  2. ENOXAPARIN SODIUM. [Suspect]
     Active Substance: ENOXAPARIN SODIUM
     Indication: ANTICOAGULANT THERAPY
     Dosage: UNK UNK, QD
     Dates: start: 201804
  3. ENOXAPARIN SODIUM. [Suspect]
     Active Substance: ENOXAPARIN SODIUM
     Dosage: UNK, UNK, QD
     Dates: start: 201809

REACTIONS (4)
  - Thrombosis [Recovered/Resolved]
  - Product dose omission [Unknown]
  - Hip fracture [Recovered/Resolved]
  - Vein collapse [Recovered/Resolved]

NARRATIVE: CASE EVENT DATE: 201809
